FAERS Safety Report 16777990 (Version 2)
Quarter: 2019Q3

REPORT INFORMATION
  Report Type: Report from Study
  Country: IT (occurrence: IT)
  Receive Date: 20190905
  Receipt Date: 20190925
  Transmission Date: 20191005
  Serious: Yes (Hospitalization)
  Sender: FDA-Public Use
  Company Number: IT-EISAI MEDICAL RESEARCH-EC-2019-061601

PATIENT
  Age: 13 Year
  Sex: Female
  Weight: 34.8 kg

DRUGS (5)
  1. CEFIXIME. [Concomitant]
     Active Substance: CEFIXIME
  2. IRINOTECAN [Suspect]
     Active Substance: IRINOTECAN
     Indication: EWING^S SARCOMA
     Dosage: 20 MG/MG
     Route: 042
     Dates: start: 20190107
  3. ERIBULIN [Suspect]
     Active Substance: ERIBULIN
     Indication: EWING^S SARCOMA
     Dosage: 1.4 MG/MG
     Route: 042
     Dates: start: 20190107, end: 20190314
  4. ERIBULIN [Suspect]
     Active Substance: ERIBULIN
     Dosage: 1.1 MG/MG
     Route: 042
     Dates: start: 20190321
  5. ONDANSETRON [Concomitant]
     Active Substance: ONDANSETRON

REACTIONS (1)
  - Bacteraemia [Recovered/Resolved]

NARRATIVE: CASE EVENT DATE: 20190830
